FAERS Safety Report 4620856-7 (Version None)
Quarter: 2005Q1

REPORT INFORMATION
  Report Type: 
  Country: None (occurrence: None)
  Receive Date: 20050325
  Receipt Date: 20050314
  Transmission Date: 20050727
  Serious: Yes (Other)
  Sender: FDA-Public Use
  Company Number: HQWYE164617MAR05

PATIENT
  Age: 51 Year
  Sex: Female
  Weight: 93.98 kg

DRUGS (2)
  1. PREMARIN [Suspect]
     Indication: HORMONE REPLACEMENT THERAPY
     Dosage: RED OVAL TABLET, ORAL
     Route: 048
     Dates: start: 19750101, end: 19960101
  2. EVISTA [Suspect]
     Indication: HORMONE REPLACEMENT THERAPY
     Dosage: UNKNOWN STARTED AFTER CANCER SURGERY, ORAL
     Route: 048
     Dates: start: 19970101

REACTIONS (3)
  - BREAST CANCER METASTATIC [None]
  - BREAST CANCER STAGE III [None]
  - OVARIAN CANCER [None]
